FAERS Safety Report 7885740-4 (Version None)
Quarter: 2011Q4

REPORT INFORMATION
  Report Type: 
  Country: None (occurrence: None)
  Receive Date: 20111102
  Receipt Date: 20110630
  Transmission Date: 20120403
  Serious: No
  Sender: FDA-Public Use
  Company Number: US-AMGEN-USASP2011013319

PATIENT
  Sex: Female
  Weight: 86 kg

DRUGS (2)
  1. ENBREL [Suspect]
     Indication: PSORIATIC ARTHROPATHY
     Dosage: 50 MG, QWK
     Route: 058
     Dates: start: 20101116
  2. ENBREL [Suspect]
     Indication: PSORIASIS
     Dosage: 50 MG, QWK
     Dates: start: 20030101

REACTIONS (6)
  - INJECTION SITE PAIN [None]
  - NASOPHARYNGITIS [None]
  - ARTHRALGIA [None]
  - HAND DEFORMITY [None]
  - PSORIASIS [None]
  - OEDEMA PERIPHERAL [None]
